FAERS Safety Report 7501313-7 (Version None)
Quarter: 2011Q2

REPORT INFORMATION
  Report Type: 
  Country: None (occurrence: None)
  Receive Date: 20110524
  Receipt Date: 20110510
  Transmission Date: 20111010
  Serious: Yes (Other)
  Sender: FDA-Public Use
  Company Number: US-JNJFOC-20110504480

PATIENT
  Age: 53 Year
  Sex: Male
  Weight: 100.02 kg

DRUGS (3)
  1. ENBREL [Suspect]
     Indication: PRODUCT USED FOR UNKNOWN INDICATION
  2. REMICADE [Suspect]
     Indication: RHEUMATOID ARTHRITIS
     Route: 042
     Dates: start: 20110303
  3. REMICADE [Suspect]
     Route: 042
     Dates: start: 20110201

REACTIONS (4)
  - ANAPHYLACTIC REACTION [None]
  - INFUSION RELATED REACTION [None]
  - HYPOTENSION [None]
  - CARDIO-RESPIRATORY ARREST [None]
